FAERS Safety Report 4377428-1 (Version None)
Quarter: 2004Q2

REPORT INFORMATION
  Report Type: 
  Country: None (occurrence: None)
  Receive Date: 20040609
  Receipt Date: 20040324
  Transmission Date: 20050107
  Serious: No
  Sender: FDA-Public Use
  Company Number: 2004197332US

PATIENT
  Age: 84 Year
  Sex: Female
  Weight: 71.7 kg

DRUGS (10)
  1. BEXTRA [Suspect]
     Indication: OSTEOARTHRITIS
     Dosage: 10 MG, QD
     Dates: start: 20040201, end: 20040218
  2. PRINIVIL [Concomitant]
  3. LASIX [Concomitant]
  4. ASPIRIN [Concomitant]
  5. FLUOR-OP (FLUOROMETHOLONE) [Concomitant]
  6. MIACALCIN [Concomitant]
  7. TYLENOL [Concomitant]
  8. PRILOSEC [Concomitant]
  9. LASIX [Concomitant]
  10. ZOCOR [Concomitant]

REACTIONS (12)
  - ABDOMINAL DISTENSION [None]
  - DRUG INEFFECTIVE [None]
  - FAECES DISCOLOURED [None]
  - FATIGUE [None]
  - FLUID RETENTION [None]
  - HUNGER [None]
  - IRRITABILITY [None]
  - MUSCLE CRAMP [None]
  - NAUSEA [None]
  - PAIN IN EXTREMITY [None]
  - SLEEP DISORDER [None]
  - WEIGHT INCREASED [None]
